FAERS Safety Report 17010076 (Version 1)
Quarter: 2019Q4

REPORT INFORMATION
  Report Type: Spontaneous
  Country: US (occurrence: US)
  Receive Date: 20191107
  Receipt Date: 20191107
  Transmission Date: 20200122
  Serious: No
  Sender: FDA-Public Use
  Company Number: None

PATIENT
  Age: 55 Year
  Sex: Female
  Weight: 48.6 kg

DRUGS (5)
  1. BUPROPION XL TAB 150 MG 24 HR GENERIC FOR WELLBUTRIN -XL TAB 150 MG [Suspect]
     Active Substance: BUPROPION HYDROCHLORIDE
     Indication: MENOPAUSE
     Dosage: ?          QUANTITY:1 TABLET(S);?
     Route: 048
     Dates: start: 20191023, end: 20191105
  2. VITAMIN D [Concomitant]
     Active Substance: VITAMIN D NOS
  3. VITAMIN K2 [Concomitant]
     Active Substance: MENAQUINONE 6
  4. ATORVASTATIN [Concomitant]
     Active Substance: ATORVASTATIN
  5. CALCIUM CITRATE [Concomitant]
     Active Substance: CALCIUM CITRATE

REACTIONS (5)
  - Drug ineffective [None]
  - Feeling abnormal [None]
  - Product substitution issue [None]
  - Product formulation issue [None]
  - Product residue present [None]

NARRATIVE: CASE EVENT DATE: 20191102
